FAERS Safety Report 6755570-5 (Version None)
Quarter: 2010Q2

REPORT INFORMATION
  Report Type: 
  Country: None (occurrence: None)
  Receive Date: 20100602
  Receipt Date: 20100524
  Transmission Date: 20101027
  Serious: Yes (Other)
  Sender: FDA-Public Use
  Company Number: 2010SP015035

PATIENT
  Age: 34 Year
  Sex: Male

DRUGS (8)
  1. MIRTAZAPINE [Suspect]
     Indication: DEPRESSION
     Dosage: 15 MG;QD;PO
     Route: 048
     Dates: start: 20091109, end: 20100205
  2. LITHIUM CARBONATE CAP [Concomitant]
  3. NORTRIPTYLINE HCL [Concomitant]
  4. HYDROCHLORIDE [Concomitant]
  5. TRAZODONE HYDROCHLORIDE [Concomitant]
  6. BROMAZEPAM [Concomitant]
  7. RISPERIDONE [Concomitant]
  8. ZOLPIDEM TARTRATE [Concomitant]

REACTIONS (6)
  - DECREASED ACTIVITY [None]
  - FEELING ABNORMAL [None]
  - FEELING HOT [None]
  - HYPERTENSION [None]
  - SOMNOLENCE [None]
  - TACHYCARDIA [None]
